FAERS Safety Report 7575711-X (Version None)
Quarter: 2011Q2

REPORT INFORMATION
  Report Type: 
  Country: None (occurrence: None)
  Receive Date: 20110628
  Receipt Date: 20110620
  Transmission Date: 20111010
  Serious: Yes (Hospitalization)
  Sender: FDA-Public Use
  Company Number: US-BIOGENIDEC-2010BI040054

PATIENT
  Age: 48 Year
  Sex: Male

DRUGS (2)
  1. TYSABRI [Suspect]
     Indication: MULTIPLE SCLEROSIS
     Route: 042
     Dates: start: 20080204, end: 20101004
  2. AVONEX [Concomitant]
     Indication: MULTIPLE SCLEROSIS
     Route: 030
     Dates: start: 19990601, end: 20030101

REACTIONS (9)
  - MUSCULOSKELETAL DISORDER [None]
  - DRUG INEFFECTIVE [None]
  - SYNCOPE [None]
  - HYPOAESTHESIA [None]
  - MOBILITY DECREASED [None]
  - URINARY TRACT INFECTION [None]
  - FATIGUE [None]
  - ASTHENIA [None]
  - BEDRIDDEN [None]
